FAERS Safety Report 5933301-6 (Version None)
Quarter: 2008Q4

REPORT INFORMATION
  Report Type: 
  Country: None (occurrence: None)
  Receive Date: 20081028
  Receipt Date: 20081024
  Transmission Date: 20090506
  Serious: Yes (Other)
  Sender: FDA-Public Use
  Company Number: FR-B.I. PHARMACEUTICALS,INC./RIDGEFIELD-2008-DE-06357GD

PATIENT
  Age: 53 Year
  Sex: Female

DRUGS (6)
  1. CATAPRESSAN [Suspect]
     Indication: NERVE BLOCK
     Dosage: 45MCG
  2. CATAPRESSAN [Suspect]
  3. NAROPEINE [Suspect]
     Indication: NERVE BLOCK
     Dosage: 40 ML OF 0.5%
  4. NAROPEINE [Suspect]
  5. LIDOCAINE [Suspect]
     Indication: NERVE BLOCK
     Dosage: 20 ML OF 1%
  6. SUFENTANIL CITRATE [Concomitant]
     Dosage: 20MCG
     Route: 042

REACTIONS (1)
  - SCIATIC NERVE NEUROPATHY [None]
